FAERS Safety Report 12312691 (Version 1)
Quarter: 2016Q2

REPORT INFORMATION
  Report Type: Spontaneous
  Country: GB (occurrence: GB)
  Receive Date: 20160428
  Receipt Date: 20160428
  Transmission Date: 20160815
  Serious: Yes (Other)
  Sender: FDA-Public Use
  Company Number: GB-AMGEN-GBRSP2016035702

PATIENT
  Age: 54 Year
  Sex: Female

DRUGS (3)
  1. METHOTREXATE [Concomitant]
     Active Substance: METHOTREXATE
     Dosage: 25 MG, ONCE WEEKLY
  2. ENBREL [Suspect]
     Active Substance: ETANERCEPT
     Indication: RHEUMATOID ARTHRITIS
     Dosage: 50 MG, WEEKLY
     Route: 058
     Dates: start: 20160229
  3. METHOTREXATE [Concomitant]
     Active Substance: METHOTREXATE
     Dosage: 25 MG, ONCE WEEKLY

REACTIONS (11)
  - Injection site swelling [Unknown]
  - Injection site reaction [Recovering/Resolving]
  - Rheumatoid arthritis [Unknown]
  - Injection site pain [Unknown]
  - Injection site pruritus [Unknown]
  - Pain [Unknown]
  - Injection site warmth [Recovering/Resolving]
  - Drug ineffective [Recovering/Resolving]
  - Stress [Unknown]
  - Injection site discolouration [Unknown]
  - Injection site erythema [Recovering/Resolving]

NARRATIVE: CASE EVENT DATE: 2016
